FAERS Safety Report 10143717 (Version 1)
Quarter: 2014Q2

REPORT INFORMATION
  Report Type: Spontaneous
  Country: US (occurrence: US)
  Receive Date: 20140430
  Receipt Date: 20140430
  Transmission Date: 20141212
  Serious: Yes (Hospitalization, Other)
  Sender: FDA-Public Use
  Company Number: US-009507513-1404USA013208

PATIENT
  Age: 65 Year
  Sex: Female
  Weight: 57 kg

DRUGS (9)
  1. PRINZIDE [Suspect]
     Indication: HYPERTENSION
     Dosage: 20/25 MG DAILY IN THE MONRNING
     Route: 048
  2. CARVEDILOL [Concomitant]
     Dosage: 25 MG, BID
  3. PRAVASTATIN SODIUM [Concomitant]
     Dosage: 20 MG, QD
  4. BUPROPION HYDROCHLORIDE [Concomitant]
     Indication: HYPERTENSION
     Dosage: 150 MG, BID
  5. ASPIRIN [Concomitant]
     Dosage: 325 MG, QD
  6. MIDAZOLAM [Concomitant]
     Dosage: 2 MG, UNK
     Route: 042
  7. FENTANYL [Concomitant]
     Dosage: 500 MICROGRAM, UNK
  8. PROPOFOL [Concomitant]
     Dosage: 60 MG, UNK
  9. ROCURONIUM BROMIDE [Concomitant]
     Dosage: 50 MG, UNK

REACTIONS (1)
  - Cardiac arrest [Recovered/Resolved]
